FAERS Safety Report 4936329-8 (Version None)
Quarter: 2006Q1

REPORT INFORMATION
  Report Type: 
  Country: None (occurrence: None)
  Receive Date: 20060127
  Receipt Date: 20051222
  Transmission Date: 20060701
  Serious: Yes (Other)
  Sender: FDA-Public Use
  Company Number: 2005154250

PATIENT
  Age: 74 Year
  Sex: Male

DRUGS (11)
  1. LYRICA [Suspect]
     Indication: DIABETIC NEUROPATHY
     Dosage: 150 MG (75 MG,2 IN 1 D)
     Dates: start: 20051105, end: 20051107
  2. NEURONTIN [Suspect]
     Indication: DIABETIC NEUROPATHY
     Dosage: 2400 MG (600 MG,4 IN 1 D),ORAL
     Route: 048
  3. METFORMIN HCL [Concomitant]
  4. AMARYL [Concomitant]
  5. ENALAPRIL MALEATE [Concomitant]
  6. MIRAPEX [Concomitant]
  7. LASIX [Concomitant]
  8. PAXIL [Concomitant]
  9. CALCIUM WITH VITAMIN D (CALCIUM PHOSPHATE, CALCIUM SODIUM LACTATE, ERG [Concomitant]
  10. NAPROSYN [Concomitant]
  11. ALL OTHER THERAPEUTIC PRODUCTS (ALL OTHER THERAPEUTIC PRODUCTS) [Concomitant]

REACTIONS (5)
  - BLOOD PRESSURE INCREASED [None]
  - BRADYCARDIA [None]
  - HEART RATE INCREASED [None]
  - NEUROPATHY [None]
  - PALPITATIONS [None]
